FAERS Safety Report 8008578-6 (Version None)
Quarter: 2011Q4

REPORT INFORMATION
  Report Type: 
  Country: None (occurrence: None)
  Receive Date: 20111221
  Receipt Date: 20111205
  Transmission Date: 20120403
  Serious: Yes (Hospitalization, Other)
  Sender: FDA-Public Use
  Company Number: 2011P1013932

PATIENT
  Age: 68 Year
  Sex: Female

DRUGS (2)
  1. METHIMAZOLE [Suspect]
     Indication: HYPERTHYROIDISM
     Dosage: 15 MG, BID, QD
  2. PROPRANOLOL [Concomitant]

REACTIONS (6)
  - EXCORIATION [None]
  - NECROTISING FASCIITIS [None]
  - LIMB INJURY [None]
  - WHITE BLOOD CELL COUNT DECREASED [None]
  - AGRANULOCYTOSIS [None]
  - FALL [None]
